FAERS Safety Report 10518403 (Version 1)
Quarter: 2014Q4

REPORT INFORMATION
  Report Type: Spontaneous
  Country: IT (occurrence: IT)
  Receive Date: 20141015
  Receipt Date: 20141015
  Transmission Date: 20150528
  Serious: Yes (Life-Threatening)
  Sender: FDA-Public Use
  Company Number: IT-TEVA-514386ISR

PATIENT
  Age: 71 Year
  Sex: Female
  Weight: 65 kg

DRUGS (2)
  1. EPIRUBICINA TEVA 2 MG/ML SOLUCION INYECTABLE Y PARA PERFUSION EFG [Suspect]
     Active Substance: EPIRUBICIN
     Indication: BREAST CANCER
     Route: 042
     Dates: start: 20140818, end: 20140908
  2. ENDOXAN BAXTER [Suspect]
     Active Substance: CYCLOPHOSPHAMIDE
     Indication: BREAST CANCER
     Dosage: 700 MILLIGRAM DAILY;
     Route: 042
     Dates: start: 20140818, end: 20140908

REACTIONS (2)
  - Haematotoxicity [None]
  - Haematological malignancy [Unknown]

NARRATIVE: CASE EVENT DATE: 20140915
